FAERS Safety Report 7479608-5 (Version None)
Quarter: 2011Q2

REPORT INFORMATION
  Report Type: 
  Country: None (occurrence: None)
  Receive Date: 20110513
  Receipt Date: 20100110
  Transmission Date: 20111010
  Serious: Yes (Death, Hospitalization, Other)
  Sender: FDA-Public Use
  Company Number: US-BAYER-201010281NA

PATIENT
  Age: 61 Year
  Sex: Male
  Weight: 107 kg

DRUGS (36)
  1. TRASYLOL [Suspect]
     Dosage: 200 ML INFUSION
     Route: 042
     Dates: start: 20030827, end: 20030827
  2. HUMIBID [Concomitant]
     Dosage: 400 MG, BID
     Route: 048
  3. ACETYLSALICYLIC ACID SRT [Concomitant]
     Dosage: 81 MG, QD
     Route: 048
  4. LOPRESSOR [Concomitant]
     Dosage: 5 MG, X3 DOSES
     Route: 042
  5. PHENYLEPHRINE [PHENYLEPHRINE] [Concomitant]
     Dosage: UNK
     Dates: start: 20030827
  6. TRASYLOL [Suspect]
     Indication: CORONARY ARTERY BYPASS
     Dosage: 200 ML, ONCE, LOADING DOSE
     Route: 040
     Dates: start: 20030827, end: 20030827
  7. GLYBURIDE [Concomitant]
     Dosage: 5 MG, BID
     Route: 048
  8. SODIUM NITROPRUSSIDE [Concomitant]
     Dosage: UNK
     Dates: start: 20030827
  9. GLYCOPYRROLATE [Concomitant]
     Dosage: UNK
     Dates: start: 20030827
  10. SUCCINYLCHOLINE CHLORIDE [Concomitant]
     Dosage: UNK
     Dates: start: 20030827
  11. SYNTHROID [Concomitant]
     Dosage: 100 MCG QD
     Route: 048
  12. HEPARIN [Concomitant]
     Dosage: 330, UNK
     Route: 042
     Dates: start: 20030827
  13. MAGNESIUM SULFATE [Concomitant]
     Dosage: UNK
     Dates: start: 20030827
  14. CALCIUM CHLORIDE [Concomitant]
     Dosage: UNK
     Dates: start: 20030827
  15. ZINACEF [Concomitant]
     Dosage: 1.5 G, UNK
     Route: 042
     Dates: start: 20030827
  16. VISIPAQUE [IODINE,IODIXANOL] [Concomitant]
     Dosage: 145 ML, UNK
     Route: 042
     Dates: start: 20030826
  17. GLUCOPHAGE [Concomitant]
     Dosage: 500 MG, BID
     Route: 048
  18. HEPARIN [Concomitant]
     Dosage: UNK DOSE, TAKEN PRIOR TO SURGERY
  19. FENTANYL [Concomitant]
     Dosage: 35 (DIVIDED DOSES)
     Dates: start: 20030827
  20. ZOCOR [Concomitant]
     Dosage: 20 MG, QD
     Route: 048
  21. MANNITOL [Concomitant]
     Dosage: UNK
     Dates: start: 20030827
  22. PAPAVERINE [PAPAVERINE] [Concomitant]
     Dosage: UNK
     Dates: start: 20030827
  23. LIDOCAINE [Concomitant]
     Dosage: UNK
     Dates: start: 20030827
  24. MORPHINE [Concomitant]
     Dosage: 10 MG, UNK
     Dates: start: 20030827
  25. OMNIPAQUE 140 [Concomitant]
     Dosage: 240 ML, UNK
     Route: 042
     Dates: start: 19970101
  26. ZYRTEC [Concomitant]
     Dosage: 10 MG, QD
     Route: 048
  27. PREVACID [Concomitant]
     Dosage: 30 MG, QD
     Route: 048
  28. PROTAMINE SULFATE [Concomitant]
     Dosage: 300 MG, UNK
     Route: 042
     Dates: start: 20030827
  29. VERSED [Concomitant]
     Dosage: 25 MG, (DIVIDED DOSES)
     Dates: start: 20030827
  30. OMNIPAQUE 140 [Concomitant]
     Dosage: 280 ML
     Route: 042
     Dates: start: 20010920
  31. POTASSIUM CHLORIDE [Concomitant]
     Dosage: UNK
     Dates: start: 20030827
  32. SODIUM BICARBONATE [Concomitant]
     Dosage: UNK
     Dates: start: 20030827
  33. PANCURONIUM BROMIDE [Concomitant]
     Dosage: UNK
     Dates: start: 20030827
  34. HETASTARCH 6% IN 0.9% SODIUM CHLORIDE IN PLASTIC CONTAINER [Concomitant]
     Dosage: 500 ML, UNK
     Dates: start: 20030827
  35. DOBUTAMINE HYDROCHLORIDE [Concomitant]
     Dosage: UNK
     Dates: start: 20030827
  36. ISOFLURANE [Concomitant]
     Dosage: UNK
     Dates: start: 20030827

REACTIONS (14)
  - DEATH [None]
  - MYOCARDIAL INFARCTION [None]
  - ANHEDONIA [None]
  - RENAL INJURY [None]
  - CEREBROVASCULAR ACCIDENT [None]
  - DEPRESSION [None]
  - RENAL FAILURE [None]
  - PAIN [None]
  - ANXIETY [None]
  - STRESS [None]
  - FEAR [None]
  - EMOTIONAL DISTRESS [None]
  - UNEVALUABLE EVENT [None]
  - INJURY [None]
